FAERS Safety Report 4370722-X (Version None)
Quarter: 2004Q2

REPORT INFORMATION
  Report Type: 
  Country: None (occurrence: None)
  Receive Date: 20040602
  Receipt Date: 20040602
  Transmission Date: 20050107
  Serious: Yes (Other)
  Sender: FDA-Public Use
  Company Number: None

PATIENT
  Age: 3 Year
  Sex: Male
  Weight: 15.4223 kg

DRUGS (1)
  1. ZITHROMAX [Suspect]
     Indication: EAR INFECTION
     Dosage: .5 TEASPO DAILY 5 DA ORAL
     Route: 048
     Dates: start: 20040506, end: 20040511

REACTIONS (6)
  - AGGRESSION [None]
  - AGITATION [None]
  - ANXIETY [None]
  - HEARING IMPAIRED [None]
  - PANIC ATTACK [None]
  - PSYCHOMOTOR HYPERACTIVITY [None]
